FAERS Safety Report 11849375 (Version 1)
Quarter: 2015Q4

REPORT INFORMATION
  Report Type: Spontaneous
  Country: US (occurrence: None)
  Receive Date: 20151217
  Receipt Date: 20151217
  Transmission Date: 20160305
  Serious: Yes (Life-Threatening, Disabling)
  Sender: FDA-Public Use
  Company Number: None

PATIENT
  Sex: Female
  Weight: 55.34 kg

DRUGS (20)
  1. DUONEB [Concomitant]
     Active Substance: ALBUTEROL SULFATE\IPRATROPIUM BROMIDE
  2. TUSSIONEX SU [Concomitant]
  3. XANAX [Concomitant]
     Active Substance: ALPRAZOLAM
  4. LEVSIN [Concomitant]
     Active Substance: HYOSCYAMINE SULFATE
  5. IBUPROFEN. [Concomitant]
     Active Substance: IBUPROFEN
  6. TRICOR [Suspect]
     Active Substance: FENOFIBRATE
     Indication: ARTERIAL OCCLUSIVE DISEASE
     Dosage: ONE PILL  BEDTIME  BY MOUTH
     Route: 048
     Dates: start: 199111, end: 20151031
  7. TRICOR [Suspect]
     Active Substance: FENOFIBRATE
     Indication: PROPHYLAXIS
     Dosage: ONE PILL  BEDTIME  BY MOUTH
     Route: 048
     Dates: start: 199111, end: 20151031
  8. TRICOR [Suspect]
     Active Substance: FENOFIBRATE
     Indication: ISCHAEMIC HEART DISEASE PROPHYLAXIS
     Dosage: ONE PILL  BEDTIME  BY MOUTH
     Route: 048
     Dates: start: 199111, end: 20151031
  9. NORVASC [Concomitant]
     Active Substance: AMLODIPINE BESYLATE
  10. KLOR-CON [Concomitant]
     Active Substance: POTASSIUM CHLORIDE
  11. MOM [Concomitant]
     Active Substance: MAGNESIUM HYDROXIDE
  12. TRICOR [Suspect]
     Active Substance: FENOFIBRATE
     Indication: CEREBROVASCULAR ACCIDENT
     Dosage: ONE PILL  BEDTIME  BY MOUTH
     Route: 048
     Dates: start: 199111, end: 20151031
  13. IMDUR [Concomitant]
     Active Substance: ISOSORBIDE MONONITRATE
  14. PLAVIX [Concomitant]
     Active Substance: CLOPIDOGREL BISULFATE
  15. METOPROLOL XL [Concomitant]
     Active Substance: METOPROLOL
  16. SYMBICORT [Concomitant]
     Active Substance: BUDESONIDE\FORMOTEROL FUMARATE DIHYDRATE
  17. ASPIRIN 81MG [Concomitant]
     Active Substance: ASPIRIN
  18. TRICOR [Suspect]
     Active Substance: FENOFIBRATE
     Indication: LOW DENSITY LIPOPROTEIN INCREASED
     Dosage: ONE PILL  BEDTIME  BY MOUTH
     Route: 048
     Dates: start: 199111, end: 20151031
  19. EFFEXOR [Concomitant]
     Active Substance: VENLAFAXINE HYDROCHLORIDE
  20. MAGNESIUM WITH ZINC [Concomitant]

REACTIONS (6)
  - Anxiety [None]
  - Oesophageal stenosis [None]
  - Anaemia [None]
  - Depression [None]
  - Peripheral vascular disorder [None]
  - Osteoporosis [None]
